FAERS Safety Report 10617780 (Version 5)
Quarter: 2019Q3

REPORT INFORMATION
  Report Type: Report from Study
  Country: US (occurrence: US)
  Receive Date: 20141201
  Receipt Date: 20190703
  Transmission Date: 20191004
  Serious: Yes (Hospitalization, Other)
  Sender: FDA-Public Use
  Company Number: US-SA-2014SA162461

PATIENT
  Age: 50 Year
  Sex: Female
  Weight: 65.77 kg

DRUGS (10)
  1. TERIFLUNOMIDE. [Suspect]
     Active Substance: TERIFLUNOMIDE
     Dosage: 14 MG, QD
     Route: 048
     Dates: start: 20150119, end: 20190621
  2. TRIAMCINOLON [TRIAMCINOLONE ACETONIDE] [Concomitant]
  3. PROTONIX [OMEPRAZOLE] [Concomitant]
     Active Substance: OMEPRAZOLE
  4. NAPROXEN. [Concomitant]
     Active Substance: NAPROXEN
  5. GABAPENTIN. [Concomitant]
     Active Substance: GABAPENTIN
  6. PROLENSA [Concomitant]
     Active Substance: BROMFENAC SODIUM
  7. HYDROCHLOROTHIAZIDE. [Concomitant]
     Active Substance: HYDROCHLOROTHIAZIDE
  8. LISINOPRIL. [Concomitant]
     Active Substance: LISINOPRIL
  9. TERIFLUNOMIDE. [Suspect]
     Active Substance: TERIFLUNOMIDE
     Indication: RELAPSING-REMITTING MULTIPLE SCLEROSIS
     Dosage: 14 MG,QD
     Route: 048
     Dates: start: 20121218
  10. BESIVANCE [Concomitant]
     Active Substance: BESIFLOXACIN

REACTIONS (7)
  - Alopecia [Unknown]
  - Spondylolisthesis [Recovered/Resolved]
  - Nuclear magnetic resonance imaging abnormal [Unknown]
  - Seizure [Recovered/Resolved]
  - Hypoaesthesia [Unknown]
  - Multiple sclerosis relapse [Unknown]
  - Product dose omission [Not Recovered/Not Resolved]

NARRATIVE: CASE EVENT DATE: 20190621
